FAERS Safety Report 22201535 (Version 3)
Quarter: 2023Q2

REPORT INFORMATION
  Report Type: Report from Study
  Country: RO (occurrence: RO)
  Receive Date: 20230412
  Receipt Date: 20230424
  Transmission Date: 20230721
  Serious: Yes (Life-Threatening, Other)
  Sender: FDA-Public Use
  Company Number: RO-002147023-NVSC2023RO081605

PATIENT
  Age: 65 Year
  Sex: Female

DRUGS (4)
  1. SANDOSTATIN LAR DEPOT [Suspect]
     Active Substance: OCTREOTIDE ACETATE
     Indication: Neuroendocrine tumour
     Dosage: 20 MG (EVERY 28 DAYS)
     Route: 030
     Dates: start: 2021, end: 202204
  2. SANDOSTATIN LAR DEPOT [Suspect]
     Active Substance: OCTREOTIDE ACETATE
     Dosage: 40 MG (2X20 MG) (EVERY 28 DAYS)
     Route: 030
     Dates: start: 202205, end: 202212
  3. SANDOSTATIN LAR DEPOT [Suspect]
     Active Substance: OCTREOTIDE ACETATE
     Dosage: 60 MG, QMO (20 MG, 3 VIALS EVERY 28 DAYS)
     Route: 030
     Dates: start: 202301, end: 202304
  4. CAPECITABINE [Concomitant]
     Active Substance: CAPECITABINE
     Indication: Neuroendocrine tumour
     Dosage: UNK
     Route: 065
     Dates: start: 202303

REACTIONS (5)
  - Dysstasia [Not Recovered/Not Resolved]
  - Illness [Recovering/Resolving]
  - Drug ineffective [Recovering/Resolving]
  - Off label use [Unknown]
  - Product availability issue [Recovered/Resolved]

NARRATIVE: CASE EVENT DATE: 20220501
